FAERS Safety Report 7303656-9 (Version None)
Quarter: 2011Q1

REPORT INFORMATION
  Report Type: 
  Country: None (occurrence: None)
  Receive Date: 20110221
  Receipt Date: 20110216
  Transmission Date: 20110831
  Serious: Yes (Hospitalization, Other)
  Sender: FDA-Public Use
  Company Number: US-AMGEN-QUU410218

PATIENT
  Age: 46 Year
  Sex: Female
  Weight: 98.5 kg

DRUGS (4)
  1. CITALOPRAM [Concomitant]
  2. AMITRIPTYLINE HYDROCHLORIDE [Concomitant]
  3. NPLATE [Suspect]
     Indication: IDIOPATHIC THROMBOCYTOPENIC PURPURA
     Dosage: 10 A?G/KG, QWK
     Dates: start: 20091104, end: 20100304
  4. DEXLANSOPRAZOLE [Concomitant]

REACTIONS (9)
  - THERAPEUTIC RESPONSE DECREASED [None]
  - FATIGUE [None]
  - BACK PAIN [None]
  - COUGH [None]
  - ABDOMINAL DISCOMFORT [None]
  - MENORRHAGIA [None]
  - DYSPNOEA [None]
  - THROMBOCYTOPENIA [None]
  - INSOMNIA [None]
